FAERS Safety Report 6451973-7 (Version None)
Quarter: 2009Q4

REPORT INFORMATION
  Report Type: 
  Country: None (occurrence: None)
  Receive Date: 20091123
  Receipt Date: 20091109
  Transmission Date: 20100525
  Serious: Yes (Hospitalization, Other)
  Sender: FDA-Public Use
  Company Number: US-CELGENEUS-163-21880-09111614

PATIENT
  Sex: Female
  Weight: 46.308 kg

DRUGS (18)
  1. REVLIMID [Suspect]
     Indication: MULTIPLE MYELOMA
     Route: 048
     Dates: start: 20090713
  2. REVLIMID [Suspect]
     Route: 048
     Dates: start: 20090518
  3. REVLIMID [Suspect]
     Route: 048
     Dates: start: 20090315, end: 20090427
  4. REVLIMID [Suspect]
     Route: 048
     Dates: start: 20090901
  5. COUMADIN [Concomitant]
     Route: 065
     Dates: end: 20091014
  6. VELCADE [Concomitant]
     Indication: MULTIPLE MYELOMA
     Route: 065
     Dates: start: 20090801
  7. DEXAMETHASONE [Concomitant]
     Indication: MULTIPLE MYELOMA
     Route: 065
     Dates: start: 20090801
  8. ZOMETA [Concomitant]
     Indication: DRUG USE FOR UNKNOWN INDICATION
     Route: 065
  9. LYRICA [Concomitant]
     Indication: DRUG USE FOR UNKNOWN INDICATION
     Route: 065
  10. WELLBUTRIN SR [Concomitant]
     Indication: DRUG USE FOR UNKNOWN INDICATION
     Route: 065
  11. XANAX [Concomitant]
     Indication: DRUG USE FOR UNKNOWN INDICATION
     Route: 065
  12. VITAMIN D [Concomitant]
     Indication: DRUG USE FOR UNKNOWN INDICATION
     Route: 065
  13. VICODIN [Concomitant]
     Indication: DRUG USE FOR UNKNOWN INDICATION
     Route: 065
  14. FENTANYL-100 [Concomitant]
     Indication: DRUG USE FOR UNKNOWN INDICATION
     Route: 065
  15. LOMOTIL [Concomitant]
     Indication: DRUG USE FOR UNKNOWN INDICATION
     Route: 065
  16. IMODIUM [Concomitant]
     Indication: DRUG USE FOR UNKNOWN INDICATION
     Route: 065
  17. BACLOFEN [Concomitant]
     Indication: DRUG USE FOR UNKNOWN INDICATION
     Route: 065
  18. DOXIL [Concomitant]
     Indication: MULTIPLE MYELOMA

REACTIONS (9)
  - DEHYDRATION [None]
  - ELECTROLYTE IMBALANCE [None]
  - FAILURE TO THRIVE [None]
  - INFLUENZA [None]
  - MENINGITIS CRYPTOCOCCAL [None]
  - NEUTROPHIL COUNT DECREASED [None]
  - PYODERMA GANGRENOSUM [None]
  - RENAL FAILURE [None]
  - SEPSIS [None]
